FAERS Safety Report 22028141 (Version 2)
Quarter: 2024Q1

REPORT INFORMATION
  Report Type: Spontaneous
  Country: US (occurrence: None)
  Receive Date: 20230223
  Receipt Date: 20240207
  Transmission Date: 20240410
  Serious: No
  Sender: FDA-Public Use
  Company Number: US-ROCHE-3231905

PATIENT
  Age: 31 Year
  Sex: Female
  Weight: 93.07 kg

DRUGS (14)
  1. XOLAIR [Suspect]
     Active Substance: OMALIZUMAB
     Indication: Mast cell activation syndrome
     Route: 058
     Dates: start: 2022, end: 202211
  2. XOLAIR [Suspect]
     Active Substance: OMALIZUMAB
  3. XOLAIR [Suspect]
     Active Substance: OMALIZUMAB
  4. XOLAIR [Suspect]
     Active Substance: OMALIZUMAB
     Indication: Urticaria
     Route: 058
     Dates: start: 202205
  5. XOLAIR [Suspect]
     Active Substance: OMALIZUMAB
  6. XOLAIR [Suspect]
     Active Substance: OMALIZUMAB
  7. ALLEGRA [Concomitant]
     Active Substance: FEXOFENADINE HYDROCHLORIDE
     Indication: Mast cell activation syndrome
     Route: 048
  8. ATARAX [Concomitant]
     Active Substance: HYDROXYZINE HYDROCHLORIDE
     Indication: Mast cell activation syndrome
     Dosage: TAKES AT NIGHT; STARTED BEFORE XOLAIR
     Route: 048
  9. SINGULAIR [Concomitant]
     Active Substance: MONTELUKAST SODIUM
     Indication: Mast cell activation syndrome
     Route: 048
     Dates: start: 20220902
  10. BENADRYL [Concomitant]
     Active Substance: DIPHENHYDRAMINE HYDROCHLORIDE
     Indication: Mast cell activation syndrome
     Dosage: TAKES AT NIGHT; STARTED BEFORE XOLAIR
     Route: 048
  11. TAGAMET [Concomitant]
     Active Substance: CIMETIDINE
     Indication: Mast cell activation syndrome
     Dosage: STARTED BEFORE XOLAIR
     Route: 048
  12. MIDODRINE [Concomitant]
     Active Substance: MIDODRINE
     Indication: Postural orthostatic tachycardia syndrome
     Route: 048
     Dates: start: 20220927
  13. PRECOSE [Concomitant]
     Active Substance: ACARBOSE
     Indication: Hypoglycaemia
     Route: 048
     Dates: start: 20221007
  14. EPIPEN [Concomitant]
     Active Substance: EPINEPHRINE
     Indication: Anaphylactic reaction
     Dosage: ORDERED WHEN SHE STARTED XOLAIR; HAS NOT NEED TO USE IT.
     Route: 030
     Dates: start: 2022

REACTIONS (7)
  - Off label use [Unknown]
  - Urticaria [Not Recovered/Not Resolved]
  - Postural orthostatic tachycardia syndrome [Not Recovered/Not Resolved]
  - Hypoglycaemia [Not Recovered/Not Resolved]
  - Needle issue [Unknown]
  - Product dose omission issue [Unknown]
  - Product complaint [Unknown]

NARRATIVE: CASE EVENT DATE: 20220101
